FAERS Safety Report 25070931 (Version 1)
Quarter: 2025Q1

REPORT INFORMATION
  Report Type: Spontaneous
  Country: GB (occurrence: GB)
  Receive Date: 20250312
  Receipt Date: 20250312
  Transmission Date: 20250409
  Serious: Yes (Other)
  Sender: CSL BEHRING
  Company Number: None

PATIENT
  Age: 85 Year
  Sex: Female

DRUGS (1)
  1. HIZENTRA [Suspect]
     Active Substance: HUMAN IMMUNOGLOBULIN G
     Indication: Product used for unknown indication
     Dosage: 7 G, QW
     Route: 065

REACTIONS (10)
  - Pulmonary embolism [Unknown]
  - Hypotension [Unknown]
  - Headache [Unknown]
  - Vomiting [Unknown]
  - Cold sweat [Unknown]
  - Hyperhidrosis [Unknown]
  - Tremor [Unknown]
  - Chest pain [Unknown]
  - Respiratory rate increased [Unknown]
  - Pallor [Unknown]

NARRATIVE: CASE EVENT DATE: 20250228
